FAERS Safety Report 21951139 (Version 4)
Quarter: 2023Q2

REPORT INFORMATION
  Report Type: Spontaneous
  Country: JP (occurrence: JP)
  Receive Date: 20230203
  Receipt Date: 20230612
  Transmission Date: 20230721
  Serious: Yes (Hospitalization)
  Sender: FDA-Public Use
  Company Number: JP-ABBVIE-4250189

PATIENT
  Age: 27 Year
  Sex: Female
  Weight: 44 kg

DRUGS (7)
  1. RINVOQ [Suspect]
     Active Substance: UPADACITINIB
     Indication: Dermatitis atopic
     Dosage: 30 MILLIGRAM
     Route: 048
     Dates: start: 20220908, end: 20221108
  2. RINVOQ [Suspect]
     Active Substance: UPADACITINIB
     Indication: Dermatitis atopic
     Dosage: 30 MILLIGRAM
     Route: 048
     Dates: start: 20221114, end: 20221212
  3. RINVOQ [Suspect]
     Active Substance: UPADACITINIB
     Indication: Dermatitis atopic
     Route: 048
     Dates: start: 20220519, end: 20220907
  4. DIFLUCORTOLONE VALERATE [Suspect]
     Active Substance: DIFLUCORTOLONE VALERATE
     Indication: Product used for unknown indication
     Dosage: FORM STRENGTH: 0.1 PERCENT
     Route: 061
  5. UNSPECIFIED INGREDIENT [Suspect]
     Active Substance: UNSPECIFIED INGREDIENT
     Indication: Product used for unknown indication
     Dosage: FORM STRENGTH: 0.3 PERCENT
     Route: 061
  6. ALCLOMETASONE DIPROPIONATE [Suspect]
     Active Substance: ALCLOMETASONE DIPROPIONATE
     Indication: Product used for unknown indication
     Dosage: FORM STRENGTH: 0.1 PERCENT
     Route: 061
  7. OLOPATADINE HYDROCHLORIDE [Concomitant]
     Active Substance: OLOPATADINE HYDROCHLORIDE
     Indication: Product used for unknown indication
     Dosage: 2 TABLET, FORM STRENGTH: 5 MILLIGRAM
     Route: 048

REACTIONS (2)
  - Eczema herpeticum [Recovering/Resolving]
  - Rash [Recovering/Resolving]

NARRATIVE: CASE EVENT DATE: 20220908
